FAERS Safety Report 16713082 (Version 1)
Quarter: 2019Q3

REPORT INFORMATION
  Report Type: Spontaneous
  Country: FR (occurrence: FR)
  Receive Date: 20190817
  Receipt Date: 20190817
  Transmission Date: 20191004
  Serious: Yes (Hospitalization)
  Sender: FDA-Public Use
  Company Number: FR-ACCORD-151640

PATIENT
  Age: 63 Year
  Sex: Female
  Weight: 80 kg

DRUGS (6)
  1. NIVESTIM [Concomitant]
     Active Substance: FILGRASTIM
     Route: 042
     Dates: start: 20190710
  2. GEMCITABINE ACCORD [Suspect]
     Active Substance: GEMCITABINE HYDROCHLORIDE
     Indication: T-CELL LYMPHOMA
     Route: 042
     Dates: start: 20190710, end: 20190710
  3. AMIKACIN MYLAN [Suspect]
     Active Substance: AMIKACIN
     Indication: PYREXIA
     Dosage: POWDER FOR INJECTABLE SOLUTION IN BOTTLE,STRENGTH : 1 GRAM
     Route: 042
     Dates: start: 20190710, end: 20190710
  4. OXALIPLATIN ACCORD [Suspect]
     Active Substance: OXALIPLATIN
     Indication: T-CELL LYMPHOMA
     Dosage: STRENGTH :  5 MG / ML
     Route: 042
     Dates: start: 20190710, end: 20190710
  5. CEFOTAXIME [Suspect]
     Active Substance: CEFOTAXIME SODIUM
     Indication: PYREXIA
     Dosage: STRENGTH : 1 G
     Route: 042
     Dates: start: 20190710, end: 20190710
  6. ONDANSETRON/ONDANSETRON HYDROCHLORIDE [Concomitant]
     Route: 048
     Dates: start: 20190710

REACTIONS (2)
  - Acute generalised exanthematous pustulosis [Recovered/Resolved]
  - Off label use [Unknown]

NARRATIVE: CASE EVENT DATE: 20190711
